FAERS Safety Report 11982298 (Version 4)
Quarter: 2016Q1

REPORT INFORMATION
  Report Type: Spontaneous
  Country: US (occurrence: US)
  Receive Date: 20160201
  Receipt Date: 20160302
  Transmission Date: 20160526
  Serious: Yes (Hospitalization, Other)
  Sender: FDA-Public Use
  Company Number: US-SUN PHARMACEUTICAL INDUSTRIES LTD-2016US-110515

PATIENT
  Age: 52 Year
  Sex: Male

DRUGS (3)
  1. VALACICLOVIR [Suspect]
     Active Substance: VALACYCLOVIR HYDROCHLORIDE
     Indication: HERPES ZOSTER
     Dosage: 1 G, TID (2 DOSES OF VALACYCLOVIR ,1 G EACH)
     Route: 065
  2. ACICLOVIR [Suspect]
     Active Substance: ACYCLOVIR
     Indication: ENCEPHALITIS
     Dosage: 600 MG, BID (9 DOSES OF ACYCLOVIR OVER 6 DAYS)
     Route: 042
  3. LABETALOL [Concomitant]
     Active Substance: LABETALOL\LABETALOL HYDROCHLORIDE
     Indication: BLOOD PRESSURE MEASUREMENT
     Dosage: UNK
     Route: 042

REACTIONS (6)
  - Irritability [Recovered/Resolved]
  - Hallucination, auditory [Recovered/Resolved]
  - Status epilepticus [Recovered/Resolved]
  - Hallucination [Recovered/Resolved]
  - Restlessness [Recovered/Resolved]
  - Neurotoxicity [Recovered/Resolved]

NARRATIVE: CASE EVENT DATE: 201107
